FAERS Safety Report 4933373-1 (Version None)
Quarter: 2006Q1

REPORT INFORMATION
  Report Type: 
  Country: None (occurrence: None)
  Receive Date: 20060111
  Receipt Date: 20050208
  Transmission Date: 20060701
  Serious: Yes (Hospitalization)
  Sender: FDA-Public Use
  Company Number: A001-002-006380

PATIENT
  Age: 77 Year
  Sex: Female

DRUGS (6)
  1. ARICEPT [Suspect]
     Indication: DEMENTIA ALZHEIMER'S TYPE
     Dosage: 5 MG, 1 IN 1 D, ORAL ; 10 MG, 1 IN 1 D, ORAL
     Route: 048
     Dates: end: 20050201
  2. ARICEPT [Suspect]
     Indication: DEMENTIA ALZHEIMER'S TYPE
     Dosage: 5 MG, 1 IN 1 D, ORAL ; 10 MG, 1 IN 1 D, ORAL
     Route: 048
     Dates: start: 20030101
  3. NAMENDA [Concomitant]
  4. EVISTA [Concomitant]
  5. LIPITOR [Concomitant]
  6. NORCAM (EXPERIMENTAL DRUG) [Concomitant]

REACTIONS (1)
  - ULCER HAEMORRHAGE [None]
